FAERS Safety Report 11404681 (Version 1)
Quarter: 2015Q3

REPORT INFORMATION
  Report Type: Report from Study
  Country: FR (occurrence: FR)
  Receive Date: 20150821
  Receipt Date: 20150821
  Transmission Date: 20151125
  Serious: Yes (Hospitalization)
  Sender: FDA-Public Use
  Company Number: FR-GLAXOSMITHKLINE-FR2015GSK119790

PATIENT
  Age: 52 Year
  Sex: Male

DRUGS (5)
  1. SELOKEN [Concomitant]
     Active Substance: METOPROLOL
  2. KARDEGIC [Concomitant]
     Active Substance: ASPIRIN LYSINE
  3. OMEGA-3-ACID ETHYL ESTERS. [Suspect]
     Active Substance: OMEGA-3-ACID ETHYL ESTERS
     Indication: ISCHAEMIC HEART DISEASE PROPHYLAXIS
     Dosage: UNK
     Dates: start: 20060925, end: 20120912
  4. TRIATEC [Concomitant]
     Active Substance: RAMIPRIL
  5. CRESTOR [Concomitant]
     Active Substance: ROSUVASTATIN CALCIUM

REACTIONS (1)
  - Inguinal hernia [Unknown]

NARRATIVE: CASE EVENT DATE: 200709
